FAERS Safety Report 6243348-0 (Version None)
Quarter: 2009Q2

REPORT INFORMATION
  Report Type: 
  Country: None (occurrence: None)
  Receive Date: 20090624
  Receipt Date: 20090617
  Transmission Date: 20091009
  Serious: Yes (Hospitalization)
  Sender: FDA-Public Use
  Company Number: JP-MERCK-0905USA03446

PATIENT
  Sex: Male
  Weight: 2 kg

DRUGS (1)
  1. DECADRON [Suspect]
     Route: 064

REACTIONS (4)
  - CHEST X-RAY ABNORMAL [None]
  - PREMATURE BABY [None]
  - RESPIRATORY DISORDER [None]
  - SMALL FOR DATES BABY [None]
